FAERS Safety Report 21741941 (Version 1)
Quarter: 2022Q4

REPORT INFORMATION
  Report Type: Spontaneous
  Country: US (occurrence: None)
  Receive Date: 20221216
  Receipt Date: 20221216
  Transmission Date: 20230113
  Serious: Yes (Life-Threatening, Hospitalization, Other)
  Sender: FDA-Public Use
  Company Number: None

PATIENT
  Age: 79 Year
  Sex: Female
  Weight: 63.5 kg

DRUGS (1)
  1. CLINDAMYCIN [Suspect]
     Active Substance: CLINDAMYCIN
     Indication: Tooth abscess
     Dosage: FREQUENCY : TWICE A DAY;?
     Route: 048
     Dates: start: 20220926

REACTIONS (5)
  - Headache [None]
  - Dizziness [None]
  - Sepsis [None]
  - Pneumonia [None]
  - Product complaint [None]

NARRATIVE: CASE EVENT DATE: 20221001
